FAERS Safety Report 5236824-0 (Version None)
Quarter: 2007Q1

REPORT INFORMATION
  Report Type: 
  Country: None (occurrence: None)
  Receive Date: 20070213
  Receipt Date: 20070201
  Transmission Date: 20070707
  Serious: Yes (Hospitalization, Other)
  Sender: FDA-Public Use
  Company Number: PHHO2004JP01616

PATIENT
  Age: 77 Year
  Sex: Male
  Weight: 42 kg

DRUGS (7)
  1. ASPIRIN [Concomitant]
  2. VOLTAREN [Concomitant]
     Indication: BACK PAIN
  3. BUTAMIDE [Concomitant]
     Indication: DIABETES MELLITUS
  4. GLUCOBAY [Concomitant]
     Indication: DIABETES MELLITUS
  5. SELBEX [Concomitant]
     Indication: GASTRITIS
  6. DIOVAN [Suspect]
     Indication: HYPERTENSION
     Dosage: 80 MG, QD
     Route: 048
     Dates: start: 20030108
  7. AMARYL [Concomitant]
     Indication: DIABETES MELLITUS

REACTIONS (3)
  - HAEMORRHAGIC CEREBRAL INFARCTION [None]
  - ROAD TRAFFIC ACCIDENT [None]
  - VISUAL FIELD DEFECT [None]
